FAERS Safety Report 10969961 (Version 3)
Quarter: 2015Q3

REPORT INFORMATION
  Report Type: Spontaneous
  Country: US (occurrence: US)
  Receive Date: 20150331
  Receipt Date: 20150707
  Transmission Date: 20151125
  Serious: Yes (Other)
  Sender: FDA-Public Use
  Company Number: US-BAYER-2015-087030

PATIENT
  Age: 33 Year
  Sex: Female
  Weight: 58.5 kg

DRUGS (1)
  1. MIRENA [Suspect]
     Active Substance: LEVONORGESTREL
     Indication: CONTRACEPTION
     Dosage: 20 MCG/24HR, CONT
     Route: 015
     Dates: start: 20150320, end: 20150327

REACTIONS (5)
  - Post procedural haemorrhage [Not Recovered/Not Resolved]
  - Adnexa uteri pain [None]
  - Abdominal pain [Recovered/Resolved]
  - Procedural pain [Recovered/Resolved]
  - Off label use of device [None]

NARRATIVE: CASE EVENT DATE: 201503
